FAERS Safety Report 7650500-6 (Version None)
Quarter: 2011Q3

REPORT INFORMATION
  Report Type: 
  Country: None (occurrence: None)
  Receive Date: 20110802
  Receipt Date: 20110725
  Transmission Date: 20111222
  Serious: Yes (Other)
  Sender: FDA-Public Use
  Company Number: US-GLAXOSMITHKLINE-A0938202A

PATIENT
  Age: 28 Year
  Sex: Female

DRUGS (5)
  1. TIZANIDINE HCL [Concomitant]
  2. VITAMIN AND MINERAL PRENATAL SUPPLEMENT W/ FOLIC ACID CAP [Concomitant]
  3. ZOLPIDEM TARTRATE [Concomitant]
  4. RANITIDINE [Concomitant]
  5. BUPROPION HYDROCHLORIDE [Suspect]
     Indication: DEPRESSION
     Dosage: 150MG TWICE PER DAY
     Route: 048
     Dates: start: 20110101

REACTIONS (4)
  - MATERNAL EXPOSURE DURING PREGNANCY [None]
  - DYSPEPSIA [None]
  - VAGINAL HAEMORRHAGE [None]
  - UTERINE CONTRACTIONS DURING PREGNANCY [None]
